FAERS Safety Report 23676732 (Version 1)
Quarter: 2024Q1

REPORT INFORMATION
  Report Type: Spontaneous
  Country: HU (occurrence: HU)
  Receive Date: 20240327
  Receipt Date: 20240327
  Transmission Date: 20240410
  Serious: Yes (Other)
  Sender: FDA-Public Use
  Company Number: HU-BAXTER-2024BAX015664

PATIENT
  Age: 45 Year
  Sex: Female

DRUGS (3)
  1. CYCLOPHOSPHAMIDE [Suspect]
     Active Substance: CYCLOPHOSPHAMIDE
     Indication: Invasive ductal breast carcinoma
     Dosage: (500 MG/M2 Q3W), (TAC TREATMENT)
     Route: 065
  2. DOXORUBICIN [Suspect]
     Active Substance: DOXORUBICIN
     Indication: Invasive ductal breast carcinoma
     Dosage: (50 MG/M2 Q3W), (TAC TREATMENT)
     Route: 065
  3. DOCETAXEL [Suspect]
     Active Substance: DOCETAXEL\DOCETAXEL ANHYDROUS
     Indication: Invasive ductal breast carcinoma
     Dosage: (75 MG/M2 Q3W), (TAC TREATMENT)
     Route: 065

REACTIONS (5)
  - Cystoid macular oedema [Recovered/Resolved]
  - Retinal thickening [Recovered/Resolved]
  - Macular thickening [Recovered/Resolved]
  - Retinitis pigmentosa [Unknown]
  - Visual acuity reduced [Recovered/Resolved]
